FAERS Safety Report 4367485-0 (Version None)
Quarter: 2004Q2

REPORT INFORMATION
  Report Type: 
  Country: None (occurrence: None)
  Receive Date: 20040601
  Receipt Date: 20040525
  Transmission Date: 20050107
  Serious: Yes (Other)
  Sender: FDA-Public Use
  Company Number: 200412105FR

PATIENT
  Age: 72 Year
  Sex: Female

DRUGS (1)
  1. LASILIX [Suspect]
     Route: 048

REACTIONS (2)
  - BRONCHOSPASM [None]
  - RESPIRATORY DISTRESS [None]
